FAERS Safety Report 8415620-7 (Version None)
Quarter: 2012Q2

REPORT INFORMATION
  Report Type: 
  Country: None (occurrence: None)
  Receive Date: 20120606
  Receipt Date: 20120605
  Transmission Date: 20120825
  Serious: Yes (Death, Life-Threatening, Other)
  Sender: FDA-Public Use
  Company Number: IT-BRISTOL-MYERS SQUIBB COMPANY-16597015

PATIENT
  Age: 59 Year
  Sex: Male

DRUGS (6)
  1. ACETAMINOPHEN [Concomitant]
  2. LASIX [Concomitant]
     Dosage: 1DF= 20MG/ML SOLUTION FOR INJECTION VIALS
  3. LEVOFLOXACIN [Concomitant]
     Indication: BRONCHOPNEUMONIA
     Dosage: TAVANIC 500 IS THE STRENGTH. SOLUTION FOR INFUSION
     Dates: start: 20111229
  4. METHYLPREDNISOLONE [Concomitant]
     Dosage: 1DF= 40MG/ML POWDER ANS SOLVENT FOR SOLUTION FOR INJECTION
  5. ENOXAPARIN SODIUM [Suspect]
     Indication: CEREBRAL ISCHAEMIA
     Dosage: 6000IU AXA/0,6 ML SOLUTION FOR INJECTION
     Route: 058
     Dates: start: 20120101, end: 20120109
  6. COUMADIN [Suspect]
     Indication: ATRIAL FIBRILLATION
     Dates: start: 20110109, end: 20111229

REACTIONS (4)
  - CIRCULATORY COLLAPSE [None]
  - CEREBRAL HAEMORRHAGE [None]
  - CEREBRAL ISCHAEMIA [None]
  - BRONCHOPNEUMONIA [None]
